FAERS Safety Report 6167228-4 (Version None)
Quarter: 2009Q2

REPORT INFORMATION
  Report Type: 
  Country: None (occurrence: None)
  Receive Date: 20090424
  Receipt Date: 20090413
  Transmission Date: 20091009
  Serious: Yes (Other)
  Sender: FDA-Public Use
  Company Number: US-JNJCH-2009010137

PATIENT
  Age: 53 Year
  Sex: Male
  Weight: 84.8 kg

DRUGS (6)
  1. BENADRYL [Suspect]
     Indication: HYPERSENSITIVITY
     Dosage: TEXT:2 TABLETS 3 TIMES A DAY
     Route: 048
  2. NORCO [Concomitant]
     Indication: PAIN
     Dosage: TEXT:10/325MG 3 X A DAY
     Route: 065
  3. VALIUM [Concomitant]
     Indication: DEPRESSION
     Dosage: TEXT:10MG 3 X A DAY
     Route: 065
     Dates: start: 19990101
  4. CLONAZEPAM [Concomitant]
     Indication: NERVE INJURY
     Dosage: TEXT:3 X A DAY
     Route: 065
     Dates: start: 20040101
  5. LYRICA [Concomitant]
     Indication: NEURALGIA
     Dosage: TEXT:150MG 3 X A DAY
     Route: 065
     Dates: start: 20080101
  6. TRIAZIQUONE [Concomitant]
     Indication: SLEEP DISORDER
     Dosage: TEXT:1 X A DAY
     Route: 065
     Dates: start: 20080101

REACTIONS (5)
  - DRY MOUTH [None]
  - DYSGEUSIA [None]
  - MICTURITION DISORDER [None]
  - POLLAKIURIA [None]
  - PRODUCT TAMPERING [None]
